FAERS Safety Report 23724047 (Version 1)
Quarter: 2024Q2

REPORT INFORMATION
  Report Type: Spontaneous
  Country: EG (occurrence: None)
  Receive Date: 20240409
  Receipt Date: 20240409
  Transmission Date: 20240715
  Serious: Yes (Other)
  Sender: FDA-Public Use
  Company Number: 2024A083468

PATIENT
  Age: 13 Year
  Sex: Male

DRUGS (3)
  1. PULMICORT TURBUHALER [Suspect]
     Active Substance: BUDESONIDE
     Indication: Hypopnoea
     Dosage: 0.5MG/ML
     Route: 055
     Dates: start: 20231229, end: 20231230
  2. SWABIVENT [Concomitant]
     Indication: Hypopnoea
     Route: 055
     Dates: start: 20231229, end: 20231230
  3. UNICTAM [Concomitant]
     Dosage: 750 MG

REACTIONS (1)
  - Pupil fixed [Recovered/Resolved]
